FAERS Safety Report 10381742 (Version 2)
Quarter: 2014Q4

REPORT INFORMATION
  Report Type: Spontaneous
  Country: AU (occurrence: AU)
  Receive Date: 20140813
  Receipt Date: 20141118
  Transmission Date: 20150528
  Serious: Yes (Other)
  Sender: FDA-Public Use
  Company Number: AU-BAYER-2014-113712

PATIENT
  Sex: Female

DRUGS (6)
  1. CANESTEN 1 PERCENT [Suspect]
     Active Substance: CLOTRIMAZOLE
     Indication: CANDIDA INFECTION
     Dosage: UNK
     Route: 067
  2. ZANEDIP [Concomitant]
     Active Substance: LERCANIDIPINE HYDROCHLORIDE
  3. SOMAC [Concomitant]
     Active Substance: PANTOPRAZOLE SODIUM
  4. ATACAND [Concomitant]
     Active Substance: CANDESARTAN CILEXETIL
  5. CRESTOR [Concomitant]
     Active Substance: ROSUVASTATIN CALCIUM
  6. LOPRESSOR [Concomitant]
     Active Substance: METOPROLOL TARTRATE

REACTIONS (5)
  - Vaginal inflammation [Recovered/Resolved]
  - Medical device pain [Recovered/Resolved]
  - Vulvovaginal injury [Recovered/Resolved]
  - Application site pain [Recovered/Resolved]
  - Vaginal haemorrhage [Recovered/Resolved]
